FAERS Safety Report 17951387 (Version 1)
Quarter: 2020Q2

REPORT INFORMATION
  Report Type: Spontaneous
  Country: AT (occurrence: AT)
  Receive Date: 20200626
  Receipt Date: 20200626
  Transmission Date: 20200714
  Serious: Yes (Other)
  Sender: FDA-Public Use
  Company Number: NVSC2020AT178770

PATIENT
  Age: 71 Year
  Sex: Male

DRUGS (1)
  1. STANDACILLIN [Suspect]
     Active Substance: AMPICILLIN
     Indication: ALLERGY TEST
     Dosage: UNK UNK, UNKNOWN
     Route: 065
     Dates: start: 20200313, end: 20200313

REACTIONS (1)
  - Type IV hypersensitivity reaction [Unknown]

NARRATIVE: CASE EVENT DATE: 20200313
